FAERS Safety Report 21208225 (Version 1)
Quarter: 2022Q3

REPORT INFORMATION
  Report Type: Report from Study
  Country: US (occurrence: US)
  Receive Date: 20220812
  Receipt Date: 20220812
  Transmission Date: 20221026
  Serious: Yes (Other)
  Sender: FDA-Public Use
  Company Number: US-ABBVIE-22K-163-4385527-00

PATIENT
  Age: 64 Year
  Sex: Male

DRUGS (3)
  1. LUPRON [Suspect]
     Active Substance: LEUPROLIDE ACETATE
     Indication: Product used for unknown indication
     Route: 048
  2. MODERNA COVID-19 VACCINE [Concomitant]
     Active Substance: ELASOMERAN
     Indication: COVID-19 immunisation
     Route: 030
     Dates: start: 20210319, end: 20210319
  3. MODERNA COVID-19 VACCINE [Concomitant]
     Active Substance: ELASOMERAN
     Route: 030
     Dates: start: 20210423, end: 20210423

REACTIONS (11)
  - Loss of consciousness [Unknown]
  - Respiratory disorder [Unknown]
  - Insomnia [Unknown]
  - COVID-19 [Recovering/Resolving]
  - Pain in extremity [Not Recovered/Not Resolved]
  - Memory impairment [Unknown]
  - Micturition urgency [Unknown]
  - Rash [Unknown]
  - Hot flush [Unknown]
  - Fatigue [Unknown]
  - Acrochordon [Not Recovered/Not Resolved]

NARRATIVE: CASE EVENT DATE: 20211202
